FAERS Safety Report 17698366 (Version 11)
Quarter: 2022Q2

REPORT INFORMATION
  Report Type: Spontaneous
  Country: US (occurrence: US)
  Receive Date: 20200423
  Receipt Date: 20220420
  Transmission Date: 20220721
  Serious: No
  Sender: FDA-Public Use
  Company Number: US-PFIZER INC-2020078848

PATIENT
  Age: 76 Year
  Sex: Female

DRUGS (1)
  1. PREMPRO [Suspect]
     Active Substance: ESTROGENS, CONJUGATED\MEDROXYPROGESTERONE ACETATE
     Dosage: 0.3MG/1.5MG

REACTIONS (7)
  - Drug ineffective [Unknown]
  - Confusional state [Unknown]
  - Product dispensing error [Unknown]
  - Panic disorder [Unknown]
  - Anxiety [Unknown]
  - Visual impairment [Unknown]
  - Memory impairment [Unknown]
